FAERS Safety Report 5147675-X (Version None)
Quarter: 2006Q4

REPORT INFORMATION
  Report Type: 
  Country: None (occurrence: None)
  Receive Date: 20061110
  Receipt Date: 20061031
  Transmission Date: 20070319
  Serious: Yes (Hospitalization)
  Sender: FDA-Public Use
  Company Number: US-KINGPHARMUSA00001-K200601365

PATIENT
  Age: 95 Year
  Sex: Female

DRUGS (6)
  1. ALTACE [Suspect]
     Dosage: 2.5 MG, QD
     Route: 048
  2. TEMESTA                            /00273201/ [Suspect]
     Dosage: 1 MG, UNK
     Route: 048
  3. ACEBUTOLOL [Suspect]
     Dosage: 200 MG, UNK
     Route: 048
  4. ALTIZIDE W/SPIRONOLACTONE [Suspect]
     Dosage: 1 U, QD
     Route: 048
  5. PREVISCAN                          /00789001/ [Suspect]
     Dosage: 20 MG, UNK
     Route: 048
  6. DEROXAT [Concomitant]
     Dosage: UNK, UNK
     Route: 048

REACTIONS (2)
  - ECZEMA [None]
  - RASH ERYTHEMATOUS [None]
